FAERS Safety Report 7401715-3 (Version None)
Quarter: 2011Q1

REPORT INFORMATION
  Report Type: 
  Country: None (occurrence: None)
  Receive Date: 20110329
  Receipt Date: 20110317
  Transmission Date: 20110831
  Serious: Yes (Death, Hospitalization)
  Sender: FDA-Public Use
  Company Number: UTC-005239

PATIENT
  Age: 67 Year
  Sex: Female
  Weight: 82 kg

DRUGS (4)
  1. PANTOPRAZOLE SODIUM [Concomitant]
  2. VENDAL [Concomitant]
  3. REMODULIN [Suspect]
     Indication: PULMONARY ARTERIAL HYPERTENSION
     Dosage: 18 UG/KG (0.0125 UG/KG,1 IN 1 MIN),SUBCUTANEOUS
     Route: 058
     Dates: start: 20110115
  4. VOLUVEN [Concomitant]

REACTIONS (7)
  - HAEMODIALYSIS [None]
  - DISEASE PROGRESSION [None]
  - PULMONARY HYPERTENSION [None]
  - SELF-MEDICATION [None]
  - CARDIAC FAILURE CONGESTIVE [None]
  - DIARRHOEA [None]
  - ACUTE PRERENAL FAILURE [None]
